FAERS Safety Report 7621457-9 (Version None)
Quarter: 2011Q3

REPORT INFORMATION
  Report Type: 
  Country: None (occurrence: None)
  Receive Date: 20110719
  Receipt Date: 20110711
  Transmission Date: 20111222
  Serious: Yes (Congenital Anomaly, Other)
  Sender: FDA-Public Use
  Company Number: DE-ABBOTT-11P-062-0838112-00

PATIENT
  Sex: Male

DRUGS (4)
  1. NORDETTE-28 [Suspect]
     Indication: MATERNAL EXPOSURE DURING PREGNANCY
     Route: 064
  2. CLOZAPINE [Suspect]
     Indication: MATERNAL EXPOSURE DURING PREGNANCY
     Route: 064
  3. VALPROATE SODIUM [Suspect]
     Indication: MATERNAL EXPOSURE DURING PREGNANCY
     Route: 064
  4. PROPRANOLOL HCL [Suspect]
     Indication: MATERNAL EXPOSURE DURING PREGNANCY
     Route: 064

REACTIONS (8)
  - MATERNAL EXPOSURE DURING PREGNANCY [None]
  - RESPIRATORY DISORDER [None]
  - DYSMORPHISM [None]
  - HYPOTONIA NEONATAL [None]
  - CRYPTORCHISM [None]
  - PALLOR [None]
  - RAYNAUD'S PHENOMENON [None]
  - CYANOSIS [None]
